FAERS Safety Report 4663999-4 (Version None)
Quarter: 2005Q2

REPORT INFORMATION
  Report Type: 
  Country: None (occurrence: None)
  Receive Date: 20050516
  Receipt Date: 20050516
  Transmission Date: 20051028
  Serious: Yes (Death, Life-Threatening, Hospitalization)
  Sender: FDA-Public Use
  Company Number: None

PATIENT
  Age: 81 Year
  Sex: Female
  Weight: 49.8957 kg

DRUGS (2)
  1. INTERFERON  2 A RECOMBINANT [Suspect]
     Indication: RENAL CELL CARCINOMA STAGE UNSPECIFIED
     Dosage: 3 X WEEK
  2. ZOLOFT [Suspect]

REACTIONS (1)
  - NO ADVERSE DRUG EFFECT [None]
